FAERS Safety Report 5586133-5 (Version None)
Quarter: 2007Q4

REPORT INFORMATION
  Report Type: 
  Country: None (occurrence: None)
  Receive Date: 20071205
  Receipt Date: 20061121
  Transmission Date: 20080405
  Serious: Yes (Disabling)
  Sender: FDA-Public Use
  Company Number: HQWYE285011MAY06

PATIENT
  Age: 60 Year
  Sex: Female

DRUGS (7)
  1. EFFEXOR XR [Suspect]
     Indication: ANXIETY
     Dosage: 75 MG 1X PER 1 DAY, ORAL
     Route: 048
     Dates: start: 20060312, end: 20060320
  2. EFFEXOR XR [Suspect]
     Indication: DEPRESSION
     Dosage: 75 MG 1X PER 1 DAY, ORAL
     Route: 048
     Dates: start: 20060312, end: 20060320
  3. EFFEXOR [Suspect]
     Dosage: DOSE WAS DECREASED, ORAL
     Route: 048
     Dates: start: 20060301, end: 20060301
  4. TOPAMAX [Concomitant]
  5. CLONAZEPAM [Concomitant]
  6. INDERAL [Concomitant]
  7. RELPAX [Concomitant]

REACTIONS (4)
  - ABDOMINAL PAIN [None]
  - BLOOD URINE PRESENT [None]
  - HEPATIC CYST [None]
  - RENAL CYST [None]
